FAERS Safety Report 5951016-5 (Version None)
Quarter: 2008Q4

REPORT INFORMATION
  Report Type: 
  Country: None (occurrence: None)
  Receive Date: 20081110
  Receipt Date: 20081027
  Transmission Date: 20090506
  Serious: Yes (Hospitalization, Other)
  Sender: FDA-Public Use
  Company Number: 231205K08USA

PATIENT
  Age: 50 Year
  Sex: Female
  Weight: 45 kg

DRUGS (7)
  1. REBIF [Suspect]
     Indication: MULTIPLE SCLEROSIS
     Dosage: 44 MCG, 3 IN 1 WEEKS, SUBCUTANEOUS
     Route: 058
     Dates: start: 20031103
  2. ZOLOFT [Concomitant]
  3. MULTIVITAMIN [Concomitant]
  4. DOCUSATE (DOCUSATE) [Concomitant]
  5. TYLENOL (CAPLET) [Concomitant]
  6. AMBIEN CR [Concomitant]
  7. DIAZEPAM [Concomitant]

REACTIONS (6)
  - ANTICONVULSANT DRUG LEVEL INCREASED [None]
  - CONDITION AGGRAVATED [None]
  - CONVULSION [None]
  - DIARRHOEA [None]
  - LUMBAR VERTEBRAL FRACTURE [None]
  - VOMITING [None]
